FAERS Safety Report 26179635 (Version 1)
Quarter: 2025Q4

REPORT INFORMATION
  Report Type: Spontaneous
  Country: US (occurrence: None)
  Receive Date: 20251218
  Receipt Date: 20251218
  Transmission Date: 20260117
  Serious: Yes (Life-Threatening, Hospitalization, Disabling, Other)
  Sender: FDA-CTU
  Company Number: None

PATIENT
  Age: 53 Year
  Sex: Male
  Weight: 90 kg

DRUGS (2)
  1. LEVOFLOXACIN [Suspect]
     Active Substance: LEVOFLOXACIN
     Dosage: OTHER QUANTITY : 1 CAPSULE(S);
     Route: 048
     Dates: start: 20230907, end: 20230909
  2. Licinipril [Concomitant]

REACTIONS (9)
  - Muscle spasms [None]
  - Pain [None]
  - Musculoskeletal stiffness [None]
  - Joint noise [None]
  - Hypertension [None]
  - Glucose tolerance impaired [None]
  - Monoplegia [None]
  - Impaired work ability [None]
  - Loss of employment [None]

NARRATIVE: CASE EVENT DATE: 20230907
